FAERS Safety Report 12406037 (Version 1)
Quarter: 2016Q2

REPORT INFORMATION
  Report Type: Spontaneous
  Country: IL (occurrence: IL)
  Receive Date: 20160526
  Receipt Date: 20160526
  Transmission Date: 20160815
  Serious: Yes (Hospitalization)
  Sender: FDA-Public Use
  Company Number: IL-BAYER-2016-093006

PATIENT
  Age: 6 Month
  Sex: Male

DRUGS (5)
  1. KOGENATE FS [Suspect]
     Active Substance: ANTIHEMOPHILIC FACTOR, HUMAN RECOMBINANT
     Indication: FACTOR VIII DEFICIENCY
     Dosage: ADDITIONAL BOLUS DOSES PERIOPERATIVELY
  2. KOGENATE FS [Suspect]
     Active Substance: ANTIHEMOPHILIC FACTOR, HUMAN RECOMBINANT
     Indication: FACTOR VIII DEFICIENCY
     Dosage: 50 IU/KG, BOLUS
     Route: 042
  3. KOGENATE FS [Suspect]
     Active Substance: ANTIHEMOPHILIC FACTOR, HUMAN RECOMBINANT
     Indication: FACTOR VIII DEFICIENCY
     Dosage: 50 IU/KG, TIW
     Route: 042
  4. TRANEXAMIC ACID. [Concomitant]
     Active Substance: TRANEXAMIC ACID
     Route: 048
  5. KOGENATE FS [Suspect]
     Active Substance: ANTIHEMOPHILIC FACTOR, HUMAN RECOMBINANT
     Indication: FACTOR VIII DEFICIENCY
     Dosage: UNK

REACTIONS (1)
  - Spinal epidural haematoma [None]
